FAERS Safety Report 23433820 (Version 2)
Quarter: 2024Q1

REPORT INFORMATION
  Report Type: Spontaneous
  Country: US (occurrence: US)
  Receive Date: 20240123
  Receipt Date: 20240305
  Transmission Date: 20240410
  Serious: Yes (Disabling, Other)
  Sender: FDA-Public Use
  Company Number: US-PFIZER INC-202400018311

PATIENT
  Age: 70 Year
  Sex: Female
  Weight: 64.399 kg

DRUGS (24)
  1. PAXLOVID [Suspect]
     Active Substance: NIRMATRELVIR\RITONAVIR
     Indication: COVID-19 treatment
     Dosage: UNK
     Route: 048
     Dates: start: 20240104, end: 20240110
  2. ALENDRONATE SODIUM [Concomitant]
     Active Substance: ALENDRONATE SODIUM
     Indication: Osteopenia
     Dosage: 70 MG, WEEKLY, TAKE BEFORE FIRST FOOD/BEV - DO NOT LIE DOWN FOR 30 MIN; DO NOT LIE DOWN UNTIL AFTER
     Dates: start: 20231127
  3. AMLODIPINE BESYLATE [Concomitant]
     Active Substance: AMLODIPINE BESYLATE
     Indication: Hypertension
     Dosage: 5 MG, 1X/DAY, 1 TAB BY MOUTH DAILY (AM)
     Route: 048
  4. AZATHIOPRINE [Concomitant]
     Active Substance: AZATHIOPRINE
     Indication: Uveitis
     Dosage: 50 MG, 3X/DAY, 3 TAB BY MOUTH DAILY (2AM; 1PM)
     Route: 048
     Dates: start: 2005
  5. BENLYSTA [Concomitant]
     Active Substance: BELIMUMAB
     Indication: Systemic lupus erythematosus
     Dosage: UNK, MONTHLY, ONCE/MONTH - INFUSED
     Route: 042
     Dates: start: 20221018
  6. CELECOXIB [Concomitant]
     Active Substance: CELECOXIB
     Dosage: 200 MG, 1X/DAY, 1 CAPSULE DAILY FOR 30 DAYS
     Dates: start: 20230629
  7. FAMOTIDINE [Concomitant]
     Active Substance: FAMOTIDINE
     Indication: Oesophagitis
     Dosage: 40 MG, 1X/DAY, 1 TAB BY MOUTH DAILY AT BEDTIME
     Route: 048
     Dates: start: 20210406
  8. GABAPENTIN [Concomitant]
     Active Substance: GABAPENTIN
     Indication: Sciatica
     Dosage: 100 MG, 1 TAB BY MOUTH DAILY (PM)
     Dates: start: 2000
  9. GABAPENTIN [Concomitant]
     Active Substance: GABAPENTIN
     Indication: Neuropathy peripheral
  10. HYDROXYCHLOROQUINE [Concomitant]
     Active Substance: HYDROXYCHLOROQUINE
     Indication: Systemic lupus erythematosus
     Dosage: 200 MG, 2X/DAY, 2 TABS PER DAY (1 TAB AM/1 TAB PM)/TAKE WITH FOOD
     Dates: start: 20201105
  11. KLOR-CON M10 [Concomitant]
     Active Substance: POTASSIUM CHLORIDE
     Indication: Hypertension
     Dosage: 10 UG, 1X/DAY, 1 TAB BY MOUTH DAILY (AM)
     Route: 048
  12. METOPROLOL TARTRATE [Concomitant]
     Active Substance: METOPROLOL TARTRATE
     Indication: Hypertension
     Dosage: 25 MG, 1X/DAY, 1 TAB BY MOUTH DAILY (AM)
     Route: 048
  13. PREDNISOLONE [Concomitant]
     Active Substance: PREDNISOLONE
     Indication: Uveitis
     Dosage: UNK, 2X/DAY, 1 DROP BOTH EYES, 2X/DAY
     Dates: start: 2000
  14. PHENAZOPYRIDINE [Concomitant]
     Active Substance: PHENAZOPYRIDINE
     Indication: Urinary tract infection
     Dosage: 200 MG, AS NEEDED, 1 TAB 3X/DAY FOR 4 DAYS, AS NEEDED
     Dates: start: 20220402, end: 20220405
  15. SERTRALINE HYDROCHLORIDE [Concomitant]
     Active Substance: SERTRALINE HYDROCHLORIDE
     Indication: Menopausal symptoms
     Dosage: 50 MG, 1X/DAY, 1 TAB PER DAY (AM)
     Dates: start: 1998
  16. SIMVASTATIN [Concomitant]
     Active Substance: SIMVASTATIN
     Indication: Hypercholesterolaemia
     Dosage: 1/2 TAB AT NIGHT 4X/WEEK ON TU, TH, SA, SUN/20DEC2020: REDUCED TO 10 MG DUE TO INTERACTION WITH AMLO
  17. SIMVASTATIN [Concomitant]
     Active Substance: SIMVASTATIN
     Dosage: 1/2 TAB AT NIGHT 4X/WEEK ON MON, WED AND FR/20DEC2020: REDUCED TO 20 MG DUE TO INTERACTION WITH AMLO
  18. FISH OIL [Concomitant]
     Active Substance: FISH OIL
     Indication: Routine health maintenance
     Dosage: 1 DF, 1 TAB MID MORNING
  19. GLUCOSAMINE [Concomitant]
     Active Substance: GLUCOSAMINE
     Indication: Routine health maintenance
     Dosage: 1500 MG, 1X/DAY, 1 TAB MID MORNING
     Dates: start: 20240201
  20. CHONDROITIN [Concomitant]
     Active Substance: CHONDROITIN
     Indication: Routine health maintenance
     Dosage: 1200 MG, 1 TAB MID MORNING
     Dates: start: 20240201
  21. METHYLPREDNISOLONE [Concomitant]
     Active Substance: METHYLPREDNISOLONE
     Indication: Systemic lupus erythematosus
     Dosage: 4 MG, TAPERED DOSAGE 6 TABS TO 1 TAB/DAY OVER 6 DAYS
     Dates: start: 20220302
  22. TACROLIMUS [Concomitant]
     Active Substance: TACROLIMUS
     Indication: Eczema
     Dosage: 0.1 %, AS NEEDED, APPLY TO AFFECTED AREA TWICE A DAY, AS NEEDED
     Dates: start: 20211116
  23. TRIAMCINOLONE [Concomitant]
     Active Substance: TRIAMCINOLONE
     Indication: Eczema
     Dosage: 0.1 %, AS NEEDED, TWICE DAILY TO ECZEMA UP TO 2 WEEKS PER MONTH, AS NEEDED
     Dates: start: 20200521
  24. OMEPRAZOLE [Concomitant]
     Active Substance: OMEPRAZOLE
     Indication: Gastrooesophageal reflux disease
     Dosage: 20 MG, 1X/DAY, 1 TAB MY MOUTH DAILY (AM)
     Route: 048
     Dates: start: 2021

REACTIONS (4)
  - COVID-19 [Recovered/Resolved]
  - Disease recurrence [Recovered/Resolved]
  - Inappropriate schedule of product administration [Unknown]
  - Contraindicated product administered [Unknown]

NARRATIVE: CASE EVENT DATE: 20240117
